FAERS Safety Report 8618641 (Version 4)
Quarter: 2013Q2

REPORT INFORMATION
  Report Type: Spontaneous
  Country: US (occurrence: US)
  Receive Date: 20120618
  Receipt Date: 20130510
  Transmission Date: 20140414
  Serious: Yes (Other)
  Sender: FDA-Public Use
  Company Number: US-PFIZER INC-2012144605

PATIENT
  Age: 50 Year
  Sex: Female
  Weight: 79.37 kg

DRUGS (8)
  1. CHANTIX [Suspect]
     Indication: SMOKING CESSATION THERAPY
     Dosage: 0.5 MG, DAILY
     Route: 048
     Dates: start: 2010, end: 2010
  2. CHANTIX [Suspect]
     Dosage: UNK
     Route: 048
     Dates: start: 2010, end: 2010
  3. ALBUTEROL [Concomitant]
     Indication: PULMONARY FIBROSIS
     Dosage: UNK
  4. PREDNISONE [Concomitant]
     Indication: PULMONARY FIBROSIS
     Dosage: UNK
  5. SYMBICORT [Concomitant]
     Indication: PULMONARY FIBROSIS
     Dosage: UNK
  6. LISINOPRIL [Concomitant]
     Indication: BLOOD PRESSURE ABNORMAL
     Dosage: UNK
  7. COREG [Concomitant]
     Indication: BLOOD PRESSURE ABNORMAL
     Dosage: UNK
  8. LASIX [Concomitant]
     Dosage: UNK

REACTIONS (2)
  - Suicidal ideation [Recovered/Resolved]
  - Terminal state [Not Recovered/Not Resolved]
